FAERS Safety Report 9241742 (Version 2)
Quarter: 2013Q2

REPORT INFORMATION
  Report Type: Report from Study
  Country: US (occurrence: US)
  Receive Date: 20130419
  Receipt Date: 20130517
  Transmission Date: 20140414
  Serious: Yes (Death, Other)
  Sender: FDA-Public Use
  Company Number: US-ROCHE-1213235

PATIENT
  Sex: 0

DRUGS (1)
  1. RANIBIZUMAB [Suspect]
     Indication: AGE-RELATED MACULAR DEGENERATION
     Route: 050

REACTIONS (20)
  - Death [Fatal]
  - Retinal haemorrhage [Unknown]
  - Retinal haemorrhage [Unknown]
  - Macular fibrosis [Unknown]
  - Vitreous detachment [Unknown]
  - Retinal haemorrhage [Unknown]
  - Intraocular pressure increased [Unknown]
  - Retinal pigment epithelial tear [Unknown]
  - Vitreous haemorrhage [Unknown]
  - Venous occlusion [Unknown]
  - Cataract nuclear [Unknown]
  - Cataract subcapsular [Unknown]
  - Myocardial infarction [Unknown]
  - Arrhythmia [Unknown]
  - Haemorrhage [Unknown]
  - Pneumonia [Unknown]
  - Pancreatic carcinoma [Unknown]
  - Lung neoplasm malignant [Unknown]
  - Hip fracture [Unknown]
  - Cellulitis [Unknown]
